FAERS Safety Report 22645368 (Version 1)
Quarter: 2023Q2

REPORT INFORMATION
  Report Type: Spontaneous
  Country: US (occurrence: None)
  Receive Date: 20230626
  Receipt Date: 20230626
  Transmission Date: 20230722
  Serious: No
  Sender: FDA-Public Use
  Company Number: None

PATIENT
  Age: 47 Year
  Sex: Female
  Weight: 60.75 kg

DRUGS (5)
  1. BISACODYL [Suspect]
     Active Substance: BISACODYL
     Indication: Haemorrhoids
     Dosage: OTHER QUANTITY : 1 TABLET(S);?FREQUENCY : AS NEEDED;?
     Route: 048
     Dates: start: 20230626, end: 20230626
  2. BISACODYL [Suspect]
     Active Substance: BISACODYL
     Indication: Constipation
  3. Seasonale birth control [Concomitant]
  4. Costco fiber pills [Concomitant]
  5. Top Care stool softener [Concomitant]

REACTIONS (7)
  - Abdominal pain upper [None]
  - Respiratory rate increased [None]
  - Hyperhidrosis [None]
  - Dizziness [None]
  - Loss of consciousness [None]
  - Feeling cold [None]
  - Diarrhoea [None]

NARRATIVE: CASE EVENT DATE: 20230626
